FAERS Safety Report 4745892-1 (Version None)
Quarter: 2005Q3

REPORT INFORMATION
  Report Type: 
  Country: None (occurrence: None)
  Receive Date: 20050816
  Receipt Date: 20050325
  Transmission Date: 20060218
  Serious: Yes (Hospitalization)
  Sender: FDA-Public Use
  Company Number: 200512465US

PATIENT
  Sex: Male

DRUGS (13)
  1. LANTUS [Suspect]
     Indication: DIABETES MELLITUS NON-INSULIN-DEPENDENT
     Dosage: DOSE UNIT: UNITS
     Route: 058
     Dates: start: 20050201
  2. OPTICLIK (INSULIN INJECTION PEN) [Suspect]
     Dosage: DOSE: UNK
  3. VIOXX [Suspect]
     Dosage: DOSE: UNK
  4. SOME TYPE OF INSULIN NOS [Concomitant]
     Dosage: DOSE: UNK
  5. PROVENTIL [Concomitant]
     Dosage: DOSE: UNK
  6. ZOCOR [Concomitant]
  7. SYNTHROID [Concomitant]
  8. ACTOS [Concomitant]
     Dosage: DOSE: 10-12.5
  9. ZESTRIL [Concomitant]
     Dosage: DOSE: UNK
  10. PLAVIX [Concomitant]
  11. AMARYL [Concomitant]
  12. LEVAQUIN [Concomitant]
     Dosage: DOSE: UNK
  13. NAMENDA [Concomitant]
     Dosage: DOSE: UNK

REACTIONS (7)
  - BLOOD GLUCOSE INCREASED [None]
  - CARDIAC VALVE DISEASE [None]
  - CEREBROVASCULAR ACCIDENT [None]
  - INFECTION [None]
  - PYREXIA [None]
  - VIRAL INFECTION [None]
  - VOMITING [None]
